FAERS Safety Report 21897234 (Version 1)
Quarter: 2023Q1

REPORT INFORMATION
  Report Type: Spontaneous
  Country: US (occurrence: US)
  Receive Date: 20230123
  Receipt Date: 20230123
  Transmission Date: 20230417
  Serious: Yes (Hospitalization, Other)
  Sender: FDA-Public Use
  Company Number: US-SA-2023SA019470

PATIENT
  Age: 13 Year
  Sex: Female

DRUGS (1)
  1. DIPHENHYDRAMINE [Suspect]
     Active Substance: DIPHENHYDRAMINE
     Dosage: 1500 MG
     Route: 048

REACTIONS (7)
  - Hypotension [Recovered/Resolved]
  - Confusional state [Unknown]
  - Arrhythmia [Recovered/Resolved]
  - Ventricular tachycardia [Recovered/Resolved]
  - Ventricular extrasystoles [Recovered/Resolved]
  - Extrasystoles [Recovered/Resolved]
  - Intentional overdose [Recovered/Resolved]
